FAERS Safety Report 10503364 (Version 1)
Quarter: 2014Q4

REPORT INFORMATION
  Report Type: Spontaneous
  Country: GB (occurrence: GB)
  Receive Date: 20141008
  Receipt Date: 20141008
  Transmission Date: 20150528
  Serious: Yes (Other)
  Sender: FDA-Public Use
  Company Number: GB-ACCORD-026272

PATIENT
  Age: 39 Year
  Sex: Female
  Weight: 59.87 kg

DRUGS (1)
  1. AMITRIPTYLINE [Suspect]
     Active Substance: AMITRIPTYLINE
     Indication: FIBROMYALGIA
     Route: 048
     Dates: start: 20140412, end: 20140612

REACTIONS (5)
  - Loss of bladder sensation [Recovered/Resolved]
  - Off label use [Unknown]
  - Pain in jaw [Recovered/Resolved]
  - Urinary retention [Recovered/Resolved]
  - Trismus [Recovered/Resolved]

NARRATIVE: CASE EVENT DATE: 20140512
